FAERS Safety Report 21408209 (Version 1)
Quarter: 2022Q4

REPORT INFORMATION
  Report Type: Spontaneous
  Country: TW (occurrence: TW)
  Receive Date: 20221004
  Receipt Date: 20221004
  Transmission Date: 20230112
  Serious: Yes (Hospitalization)
  Sender: FDA-Public Use
  Company Number: TW-MYLANLABS-2022M1110772

PATIENT
  Age: 62 Year
  Sex: Male

DRUGS (3)
  1. CLOZAPINE [Suspect]
     Active Substance: CLOZAPINE
     Indication: Craniocerebral injury
     Dosage: 175 MILLIGRAM, QD RECEIVING SINCE PAST 3 YEARS
     Route: 065
  2. CLOZAPINE [Suspect]
     Active Substance: CLOZAPINE
     Indication: Encephalomalacia
     Dosage: CLOZAPINE WAS TAPERED FROM 125 MG/DAY
     Route: 065
  3. CLOZAPINE [Suspect]
     Active Substance: CLOZAPINE
     Dosage: DOSE WAS FURTHER TAPERED TO 75 MG/DAY.
     Route: 065

REACTIONS (2)
  - Pleurothotonus [Recovered/Resolved]
  - Off label use [Unknown]
